FAERS Safety Report 4387495-7 (Version None)
Quarter: 2004Q2

REPORT INFORMATION
  Report Type: 
  Country: None (occurrence: None)
  Receive Date: 20040630
  Receipt Date: 20040428
  Transmission Date: 20050107
  Serious: No
  Sender: FDA-Public Use
  Company Number: US-GLAXOSMITHKLINE-A0508746A

PATIENT
  Age: 62 Year
  Sex: Female

DRUGS (9)
  1. ADVAIR HFA [Suspect]
     Indication: ILL-DEFINED DISORDER
     Dosage: 1PUFF TWICE PER DAY
     Route: 055
  2. COMBIVENT [Concomitant]
  3. ALBUTEROL [Concomitant]
  4. MAXZIDE [Concomitant]
  5. LOTENSIN [Concomitant]
  6. SYNTHROID [Concomitant]
  7. PREVACID [Concomitant]
  8. MULTIVITAMIN [Concomitant]
  9. MONISTAT [Concomitant]

REACTIONS (4)
  - BLISTER [None]
  - DYSURIA [None]
  - PRURITUS [None]
  - VAGINAL MYCOSIS [None]
